FAERS Safety Report 11700380 (Version 1)
Quarter: 2015Q4

REPORT INFORMATION
  Report Type: Spontaneous
  Country: US (occurrence: US)
  Receive Date: 20151105
  Receipt Date: 20151105
  Transmission Date: 20160304
  Serious: Yes (Other)
  Sender: FDA-Public Use
  Company Number: US-TEVA-606829USA

PATIENT
  Age: 45 Year
  Sex: Female

DRUGS (7)
  1. CYCLOBENZAPRINE [Concomitant]
     Active Substance: CYCLOBENZAPRINE
     Dosage: UNKNOWN FORM STRENGTH
  2. LYRICA [Concomitant]
     Active Substance: PREGABALIN
     Dosage: UNKNOWN FORM STRENGTH
  3. COPAXONE [Suspect]
     Active Substance: GLATIRAMER ACETATE
     Indication: MULTIPLE SCLEROSIS
     Dates: start: 20151005
  4. HYDROCODONE [Concomitant]
     Active Substance: HYDROCODONE
     Dosage: UNKNOWN FORM STRENGTH
  5. CITALOPRAM [Concomitant]
     Active Substance: CITALOPRAM HYDROBROMIDE
     Dosage: UNKNOWN FORM STRENGTH
  6. VITAMIN D 3 [Concomitant]
     Dosage: UNKNOWN FORM STRENGTH
  7. METFORMIN [Concomitant]
     Active Substance: METFORMIN HYDROCHLORIDE
     Dosage: UNKNOWN FORM STRENGTH

REACTIONS (3)
  - Suicidal ideation [Unknown]
  - Motor dysfunction [Unknown]
  - Injection site reaction [Unknown]

NARRATIVE: CASE EVENT DATE: 201510
